FAERS Safety Report 22164413 (Version 1)
Quarter: 2023Q2

REPORT INFORMATION
  Report Type: Spontaneous
  Country: US (occurrence: US)
  Receive Date: 20230403
  Receipt Date: 20230403
  Transmission Date: 20230721
  Serious: No
  Sender: FDA-Public Use
  Company Number: US-AMGEN-USASP2023054935

PATIENT
  Age: 52 Year
  Sex: Female

DRUGS (6)
  1. PEGFILGRASTIM [Suspect]
     Active Substance: PEGFILGRASTIM
     Indication: HER2 positive breast cancer
     Route: 065
  2. TRASTUZUMAB [Suspect]
     Active Substance: TRASTUZUMAB
     Indication: HER2 positive breast cancer
     Route: 065
  3. DOCETAXEL [Concomitant]
     Active Substance: DOCETAXEL
     Indication: HER2 positive breast cancer
  4. CARBOPLATIN [Concomitant]
     Active Substance: CARBOPLATIN
     Indication: HER2 positive breast cancer
  5. PERTUZUMAB [Concomitant]
     Active Substance: PERTUZUMAB
     Indication: HER2 positive breast cancer
  6. METHOTREXATE [Concomitant]
     Active Substance: METHOTREXATE
     Indication: HER2 positive breast cancer

REACTIONS (1)
  - Recall phenomenon [Unknown]
